FAERS Safety Report 24698399 (Version 1)
Quarter: 2024Q4

REPORT INFORMATION
  Report Type: Spontaneous
  Country: US (occurrence: US)
  Receive Date: 20241204
  Receipt Date: 20241204
  Transmission Date: 20250114
  Serious: No
  Sender: PRIMUS PHARMACEUTICALS
  Company Number: US-PRIMUS-2024-US-000301

PATIENT
  Age: 70 Year
  Sex: Female

DRUGS (4)
  1. IMPOYZ [Suspect]
     Active Substance: CLOBETASOL PROPIONATE
     Indication: Eczema
     Dosage: APPLY TOPICALLY TO AFFECTED AREAS TWICE DAILY FOR 2 WEEKS THEN STOP FOR 2 WEEKS AND CONTINUE AS NEED
     Route: 061
     Dates: start: 20231212, end: 20240102
  2. XANAX [Concomitant]
     Active Substance: ALPRAZOLAM
  3. CLARITIN [Concomitant]
     Active Substance: LORATADINE
  4. DEVICE [Concomitant]
     Active Substance: DEVICE

REACTIONS (3)
  - Headache [Recovered/Resolved]
  - Palpitations [Unknown]
  - Product use in unapproved indication [Recovered/Resolved]

NARRATIVE: CASE EVENT DATE: 20231212
